FAERS Safety Report 4361149-5 (Version None)
Quarter: 2004Q2

REPORT INFORMATION
  Report Type: 
  Country: None (occurrence: None)
  Receive Date: 20040511
  Receipt Date: 20031008
  Transmission Date: 20050107
  Serious: Yes (Hospitalization)
  Sender: FDA-Public Use
  Company Number: USA031049359

PATIENT
  Sex: Male

DRUGS (1)
  1. PROZAC [Suspect]
     Indication: DEPRESSION

REACTIONS (5)
  - COMPULSIONS [None]
  - DYSPEPSIA [None]
  - MOOD SWINGS [None]
  - NERVOUSNESS [None]
  - SUICIDE ATTEMPT [None]
